FAERS Safety Report 18001774 (Version 2)
Quarter: 2020Q3

REPORT INFORMATION
  Report Type: Spontaneous
  Country: DE (occurrence: DE)
  Receive Date: 20200709
  Receipt Date: 20200721
  Transmission Date: 20201103
  Serious: Yes (Other)
  Sender: FDA-Public Use
  Company Number: DE-MYLANLABS-2020M1061349

PATIENT
  Sex: Male
  Weight: 94 kg

DRUGS (12)
  1. CARVEDILOL. [Concomitant]
     Active Substance: CARVEDILOL
     Indication: CARDIAC FAILURE
  2. ELIQUIS [Suspect]
     Active Substance: APIXABAN
     Indication: CEREBROVASCULAR ACCIDENT PROPHYLAXIS
     Dosage: 2.5 MILLIGRAM, QD
     Route: 065
     Dates: start: 20190723, end: 202003
  3. MAGNESIUM [Concomitant]
     Active Substance: MAGNESIUM
     Indication: VENTRICULAR EXTRASYSTOLES
     Dosage: 1 TAB, BID
     Route: 065
  4. ENTRESTO [Concomitant]
     Active Substance: SACUBITRIL\VALSARTAN
     Indication: CARDIAC FAILURE
     Dosage: UNK UNK, BID
     Route: 065
     Dates: start: 201907
  5. TORASEMIDE [Suspect]
     Active Substance: TORSEMIDE
     Indication: CARDIAC FAILURE
     Dosage: UNK UNK, BID
     Route: 065
     Dates: start: 201907
  6. TORASEMIDE [Suspect]
     Active Substance: TORSEMIDE
     Indication: PERIPHERAL SWELLING
  7. CARVEDILOL. [Concomitant]
     Active Substance: CARVEDILOL
     Indication: HYPERTENSION
     Dosage: 12.5 MG (2?0?1)
     Route: 065
     Dates: start: 201907
  8. TORASEMIDE [Suspect]
     Active Substance: TORSEMIDE
     Indication: POLYURIA
  9. RANEXA [Concomitant]
     Active Substance: RANOLAZINE
     Indication: GASTRIC DISORDER
     Dosage: UNK UNK, BID
     Route: 065
  10. GODAMED [Suspect]
     Active Substance: ASPIRIN
     Indication: PRODUCT USED FOR UNKNOWN INDICATION
     Dosage: UNK UNK, BID
     Route: 065
  11. CARVEDILOL. [Concomitant]
     Active Substance: CARVEDILOL
     Indication: TACHYCARDIA
  12. ENTRESTO [Concomitant]
     Active Substance: SACUBITRIL\VALSARTAN
     Indication: BLOOD PRESSURE MEASUREMENT

REACTIONS (8)
  - Eye haemorrhage [Recovering/Resolving]
  - Blood pressure increased [Recovered/Resolved]
  - Visual impairment [Recovering/Resolving]
  - Incontinence [Not Recovered/Not Resolved]
  - Headache [Not Recovered/Not Resolved]
  - Off label use [Unknown]
  - Intraocular pressure increased [Recovering/Resolving]
  - Epistaxis [Recovered/Resolved]

NARRATIVE: CASE EVENT DATE: 202003
